FAERS Safety Report 11656660 (Version 1)
Quarter: 2015Q4

REPORT INFORMATION
  Report Type: Spontaneous
  Country: US (occurrence: US)
  Receive Date: 20151023
  Receipt Date: 20151023
  Transmission Date: 20160304
  Serious: Yes (Disabling, Other)
  Sender: FDA-Public Use
  Company Number: US-BAYER-2015-446567

PATIENT
  Sex: Female

DRUGS (1)
  1. CIPRO [Suspect]
     Active Substance: CIPROFLOXACIN HYDROCHLORIDE
     Indication: URINARY TRACT INFECTION
     Dosage: 500 MG, QD
     Dates: start: 20111031

REACTIONS (21)
  - Hypersomnia [None]
  - Asthenia [None]
  - Nightmare [None]
  - Fatigue [None]
  - Stress [None]
  - Amnesia [None]
  - Neuropathy peripheral [None]
  - Muscular weakness [None]
  - Balance disorder [None]
  - Tinnitus [None]
  - Paraesthesia [None]
  - Visual acuity reduced [None]
  - Drug ineffective [None]
  - Panic attack [None]
  - Feeling abnormal [None]
  - Hypoaesthesia [None]
  - Radiculopathy [None]
  - Fibromyalgia [None]
  - Pain in extremity [None]
  - Confusional state [None]
  - Depression [None]
